FAERS Safety Report 13971824 (Version 2)
Quarter: 2017Q3

REPORT INFORMATION
  Report Type: Spontaneous
  Country: FR (occurrence: FR)
  Receive Date: 20170914
  Receipt Date: 20170921
  Transmission Date: 20171128
  Serious: Yes (Other)
  Sender: FDA-Public Use
  Company Number: FR-MERCK KGAA-2026214

PATIENT
  Age: 70 Year
  Sex: Male

DRUGS (7)
  1. LEVOTHYROXINE SODIUM. [Suspect]
     Active Substance: LEVOTHYROXINE SODIUM
     Route: 048
  2. XARELTO(RIVAROXABAN)(RIVAROXABAN) [Concomitant]
  3. FUROSEMIDE (FUROSEMIDE)(FUROSEMIDE) [Concomitant]
     Active Substance: FUROSEMIDE
  4. NOVOTHYROX [Suspect]
     Active Substance: LEVOTHYROXINE SODIUM
     Indication: POST PROCEDURAL HYPOTHYROIDISM
     Route: 048
     Dates: start: 20170515
  5. SOTALOL (SOTALOL)(SOTALOL) 80 UNSPECIFIED UNITS [Concomitant]
  6. CORDARONE(AMIODARONE HYDROCHLORIDE)(AMIODARONE HYDROCHLORIDE) [Concomitant]
  7. IRBESARTAN(IRBESARTAN)(IRBESARTAN) [Concomitant]

REACTIONS (4)
  - Amnesia [Not Recovered/Not Resolved]
  - Incoherent [Not Recovered/Not Resolved]
  - Irritability [Not Recovered/Not Resolved]
  - Fatigue [Not Recovered/Not Resolved]

NARRATIVE: CASE EVENT DATE: 20170808
